FAERS Safety Report 6977039-5 (Version None)
Quarter: 2010Q3

REPORT INFORMATION
  Report Type: 
  Country: None (occurrence: None)
  Receive Date: 20100910
  Receipt Date: 20100830
  Transmission Date: 20110219
  Serious: Yes (Death, Hospitalization)
  Sender: FDA-Public Use
  Company Number: DE-ROCHE-725327

PATIENT
  Sex: Male
  Weight: 58 kg

DRUGS (5)
  1. CAPECITABINE [Suspect]
     Indication: METASTATIC GASTRIC CANCER
     Route: 048
     Dates: start: 20100719, end: 20100813
  2. OXALIPLATIN [Suspect]
     Indication: METASTATIC GASTRIC CANCER
     Route: 042
     Dates: start: 20100809
  3. EPIRUBICIN [Suspect]
     Indication: METASTATIC GASTRIC CANCER
     Route: 042
     Dates: start: 20100809
  4. ACYCLOVIR SODIUM [Concomitant]
     Indication: HERPES SIMPLEX
     Route: 048
     Dates: start: 20100729, end: 20100813
  5. ASPIRIN [Concomitant]
     Route: 048

REACTIONS (5)
  - COLITIS [None]
  - EMBOLIC STROKE [None]
  - ENTERITIS [None]
  - LEUKOPENIA [None]
  - NEUTROPENIA [None]
